FAERS Safety Report 6042095-8 (Version None)
Quarter: 2009Q1

REPORT INFORMATION
  Report Type: 
  Country: None (occurrence: None)
  Receive Date: 20090116
  Receipt Date: 20090108
  Transmission Date: 20090719
  Serious: Yes (Other)
  Sender: FDA-Public Use
  Company Number: PHHY2009FR00944

PATIENT
  Age: 68 Year
  Sex: Female

DRUGS (1)
  1. ACLASTA [Suspect]
     Indication: OSTEOPOROSIS POSTMENOPAUSAL
     Route: 042

REACTIONS (3)
  - ANOREXIA [None]
  - ASTHENIA [None]
  - WEIGHT DECREASED [None]
